FAERS Safety Report 11689084 (Version 1)
Quarter: 2015Q4

REPORT INFORMATION
  Report Type: Spontaneous
  Country: BR (occurrence: BR)
  Receive Date: 20151102
  Receipt Date: 20151102
  Transmission Date: 20160304
  Serious: Yes (Other)
  Sender: FDA-Public Use
  Company Number: BR-BRISTOL-MYERS SQUIBB COMPANY-BMS-2015-071313

PATIENT
  Age: 64 Year
  Sex: Male
  Weight: 94 kg

DRUGS (11)
  1. AMLODIPINE BESILATE [Concomitant]
     Active Substance: AMLODIPINE BESYLATE
     Indication: DISCOMFORT
     Dosage: 2 TAB, QD
     Route: 065
  2. BRILINTA [Concomitant]
     Active Substance: TICAGRELOR
     Indication: ANTICOAGULANT THERAPY
     Dosage: 1 DF, QD
     Route: 065
     Dates: start: 2007
  3. SOMALGIN [Concomitant]
     Active Substance: ASPIRIN\DIHYDROXYALUMINUM AMINOACETATE ANHYDROUS\MAGNESIUM CARBONATE
     Indication: COAGULOPATHY
     Dosage: UNK UNK, QD
     Route: 065
     Dates: start: 1997
  4. ELIQUIS [Suspect]
     Active Substance: APIXABAN
     Indication: ANTICOAGULANT THERAPY
     Dosage: 1 TAB, BID
     Route: 048
     Dates: start: 20151007
  5. LOSARTAN. [Concomitant]
     Active Substance: LOSARTAN
     Indication: DISCOMFORT
     Dosage: 2 TAB, QD
     Route: 065
     Dates: start: 2000
  6. METFORMIN [Concomitant]
     Active Substance: METFORMIN HYDROCHLORIDE
     Indication: DIABETES MELLITUS
     Dosage: 1 DF, QD
     Route: 065
     Dates: start: 2010
  7. OMEPRAZOLE. [Concomitant]
     Active Substance: OMEPRAZOLE
     Indication: DYSPEPSIA
     Dosage: 1 DF, QD
     Route: 065
     Dates: start: 2005
  8. ALPRAZOLAM. [Concomitant]
     Active Substance: ALPRAZOLAM
     Indication: SLEEP DISORDER
     Dosage: 1 TAB, UNK
     Route: 065
  9. OMEPRAZOLE. [Concomitant]
     Active Substance: OMEPRAZOLE
     Indication: PROPHYLAXIS
  10. VYTORIN [Concomitant]
     Active Substance: EZETIMIBE\SIMVASTATIN
     Indication: BLOOD CHOLESTEROL
     Dosage: 2 TAB, QD
     Route: 065
     Dates: start: 2005
  11. MONOCORDIL [Concomitant]
     Active Substance: ISOSORBIDE MONONITRATE
     Indication: PRODUCT USED FOR UNKNOWN INDICATION
     Dosage: UNK
     Route: 065

REACTIONS (7)
  - Eye irritation [Recovered/Resolved]
  - Cough [Recovered/Resolved]
  - Lacrimation increased [Recovered/Resolved]
  - Haemoptysis [Recovered/Resolved]
  - Ocular hyperaemia [Recovered/Resolved]
  - Eye disorder [Recovered/Resolved]
  - Gingival bleeding [Recovered/Resolved]

NARRATIVE: CASE EVENT DATE: 201510
